FAERS Safety Report 5903637-3 (Version None)
Quarter: 2008Q3

REPORT INFORMATION
  Report Type: 
  Country: None (occurrence: None)
  Receive Date: 20080930
  Receipt Date: 20080918
  Transmission Date: 20090109
  Serious: Yes (Hospitalization)
  Sender: FDA-Public Use
  Company Number: FR-PFIZER INC-2008079328

PATIENT
  Age: 59 Year
  Sex: Male

DRUGS (5)
  1. SOLU-MEDROL [Suspect]
     Indication: PREMEDICATION
     Dosage: TEXT:120 MG/2 ML-FREQ:1 DF DAILY
     Route: 042
     Dates: start: 20080812, end: 20080812
  2. POLARAMINE [Suspect]
     Dosage: TEXT:5 MG/1 ML-FREQ:1 DF DAILY
     Route: 042
     Dates: start: 20080812, end: 20080812
  3. CETUXIMAB [Concomitant]
  4. FLUOROURACIL/FOLINIC ACID/OXALIPLATIN [Concomitant]
  5. ZOPHREN [Concomitant]

REACTIONS (5)
  - DRUG HYPERSENSITIVITY [None]
  - HYPERTHERMIA [None]
  - MALAISE [None]
  - MUSCULOSKELETAL CHEST PAIN [None]
  - NAUSEA [None]
